FAERS Safety Report 9370732 (Version 2)
Quarter: 2013Q3

REPORT INFORMATION
  Report Type: Spontaneous
  Country: AU (occurrence: AU)
  Receive Date: 20130626
  Receipt Date: 20130730
  Transmission Date: 20140515
  Serious: Yes (Hospitalization, Other)
  Sender: FDA-Public Use
  Company Number: AU-B.I. PHARMACEUTICALS,INC./RIDGEFIELD-2013-AU-00761AU

PATIENT
  Age: 71 Year
  Sex: Male
  Weight: 130 kg

DRUGS (7)
  1. PRADAXA [Suspect]
     Indication: ATRIAL FIBRILLATION
     Dosage: 300 MG
     Dates: end: 20130614
  2. IMDUR [Concomitant]
     Dosage: 60 MG
  3. ATORVASTATIN [Concomitant]
     Dosage: 40 MG
  4. FRUSEMIDE [Concomitant]
     Dosage: 40 MG
  5. VERAPAMIL [Concomitant]
     Dosage: 480 MG
  6. JANUMET [Concomitant]
     Dosage: 50/1000 BD
  7. DIGOXIN [Concomitant]
     Dosage: 187.5 MCG

REACTIONS (2)
  - Pulmonary embolism [Unknown]
  - Chest pain [Unknown]
